FAERS Safety Report 24083522 (Version 1)
Quarter: 2024Q3

REPORT INFORMATION
  Report Type: Spontaneous
  Country: JP (occurrence: JP)
  Receive Date: 20240712
  Receipt Date: 20240712
  Transmission Date: 20241017
  Serious: Yes (Other)
  Sender: JOHNSON AND JOHNSON
  Company Number: JP-JNJFOC-20240727479

PATIENT
  Age: 14 Year

DRUGS (2)
  1. RISPERDAL [Suspect]
     Active Substance: RISPERIDONE
     Indication: Product used for unknown indication
     Route: 048
  2. RISPERDAL [Suspect]
     Active Substance: RISPERIDONE
     Route: 048

REACTIONS (5)
  - Intracranial pressure increased [Unknown]
  - Obsessive-compulsive symptom [Unknown]
  - Tic [Unknown]
  - Agitation [Unknown]
  - Aggression [Unknown]
